FAERS Safety Report 16245360 (Version 1)
Quarter: 2019Q2

REPORT INFORMATION
  Report Type: Spontaneous
  Country: US (occurrence: US)
  Receive Date: 20190426
  Receipt Date: 20190426
  Transmission Date: 20190711
  Serious: No
  Sender: FDA-Public Use
  Company Number: US-ASTRAZENECA-2019SE63622

PATIENT
  Sex: Female

DRUGS (4)
  1. CALCIUM/VITAMIN D3 [Concomitant]
  2. LYNPARZA [Suspect]
     Active Substance: OLAPARIB
     Route: 048
  3. LETROZOLE. [Concomitant]
     Active Substance: LETROZOLE
  4. VITAMINS NOS [Concomitant]
     Active Substance: VITAMINS

REACTIONS (1)
  - Lymphoedema [Unknown]
